FAERS Safety Report 5320979-3 (Version None)
Quarter: 2007Q2

REPORT INFORMATION
  Report Type: 
  Country: None (occurrence: None)
  Receive Date: 20070510
  Receipt Date: 20070430
  Transmission Date: 20071010
  Serious: Yes (Hospitalization)
  Sender: FDA-Public Use
  Company Number: PHEH2007US04306

PATIENT
  Age: 51 Year
  Sex: Female

DRUGS (1)
  1. ZELNORM [Suspect]
     Indication: IRRITABLE BOWEL SYNDROME
     Dosage: 6 MG, BID
     Dates: start: 20040101, end: 20070404

REACTIONS (6)
  - CARCINOID TUMOUR PULMONARY [None]
  - CARDIAC FLUTTER [None]
  - HEART RATE INCREASED [None]
  - LIMB DISCOMFORT [None]
  - LUNG LOBECTOMY [None]
  - LUNG NEOPLASM MALIGNANT [None]
